FAERS Safety Report 4357973-5 (Version None)
Quarter: 2004Q2

REPORT INFORMATION
  Report Type: 
  Country: None (occurrence: None)
  Receive Date: 20040510
  Receipt Date: 20040430
  Transmission Date: 20050107
  Serious: Yes (Death, Life-Threatening, Hospitalization)
  Sender: FDA-Public Use
  Company Number: F01200400692

PATIENT
  Age: 72 Year
  Sex: Female

DRUGS (2)
  1. (OXALIPLATIN) - SOLUTION - 60 MG/M2 [Suspect]
     Indication: OESOPHAGEAL CARCINOMA
     Dosage: 106 MG 1/WEEK
     Route: 042
     Dates: start: 20040324, end: 20040324
  2. FLUOROURACIL [Suspect]
     Dosage: 225 MG/M2 CONT
     Route: 042
     Dates: start: 20040225, end: 20040324

REACTIONS (14)
  - ANAEMIA [None]
  - BLOOD BICARBONATE DECREASED [None]
  - BLOOD CREATINE INCREASED [None]
  - COAGULOPATHY [None]
  - ENTEROCOLITIS [None]
  - HYPOKALAEMIA [None]
  - HYPOTENSION [None]
  - INTERNATIONAL NORMALISED RATIO INCREASED [None]
  - LEUKOPENIA [None]
  - NEUTROPENIA [None]
  - PLATELET COUNT DECREASED [None]
  - PROTHROMBIN TIME PROLONGED [None]
  - RENAL FAILURE ACUTE [None]
  - THROMBOCYTOPENIA [None]
